FAERS Safety Report 8087289-5 (Version None)
Quarter: 2012Q1

REPORT INFORMATION
  Report Type: 
  Country: None (occurrence: None)
  Receive Date: 20120128
  Receipt Date: 20110523
  Transmission Date: 20120608
  Serious: Yes (Other)
  Sender: FDA-Public Use
  Company Number: US-ABBOTT-11P-163-0726012-00

PATIENT
  Sex: Male

DRUGS (5)
  1. NEURONTIN [Concomitant]
     Indication: PRODUCT USED FOR UNKNOWN INDICATION
     Dosage: PRN, UP TO THREE TABS TID
  2. HUMIRA [Suspect]
     Indication: ANKYLOSING SPONDYLITIS
     Dates: start: 20090101
  3. VICODIN [Concomitant]
     Indication: PAIN
     Dosage: OCCASIONAL, PRN
  4. HUMIRA [Suspect]
  5. NAPROXEN (ALEVE) [Concomitant]
     Indication: PRODUCT USED FOR UNKNOWN INDICATION

REACTIONS (6)
  - DEVICE MALFUNCTION [None]
  - INJECTION SITE URTICARIA [None]
  - INCORRECT DOSE ADMINISTERED [None]
  - INJECTION SITE PAIN [None]
  - KNEE OPERATION [None]
  - DRUG INEFFECTIVE [None]
